FAERS Safety Report 24914868 (Version 2)
Quarter: 2025Q1

REPORT INFORMATION
  Report Type: Report from Study
  Country: US (occurrence: US)
  Receive Date: 20250203
  Receipt Date: 20250213
  Transmission Date: 20250408
  Serious: Yes (Death)
  Sender: INSMED
  Company Number: US-INSMED, INC.-2025-00243-US

PATIENT
  Age: 90 Year
  Sex: Female

DRUGS (1)
  1. ARIKAYCE [Suspect]
     Active Substance: AMIKACIN
     Indication: Product used for unknown indication
     Dosage: 590 MILLIGRAM, TIW
     Route: 055
     Dates: start: 202406, end: 20250117

REACTIONS (1)
  - Death [Fatal]

NARRATIVE: CASE EVENT DATE: 20250117
